FAERS Safety Report 9761316 (Version 1)
Quarter: 2013Q3

REPORT INFORMATION
  Report Type: Spontaneous
  Country: US (occurrence: None)
  Receive Date: 20130816
  Receipt Date: 20130816
  Transmission Date: 20140515
  Serious: Yes (Other)
  Sender: FDA-Public Use
  Company Number: 97230

PATIENT
  Age: 47 Year
  Sex: Male

DRUGS (1)
  1. 8% MENTHOL, 30% METHYL SALICYLATE / MENTHOLATUM [Suspect]
     Indication: PAIN MANAGEMENT
     Dosage: RUB ON, TOPICAL
     Route: 061
     Dates: start: 20130802

REACTIONS (3)
  - Burning sensation [None]
  - Application site pain [None]
  - Application site vesicles [None]
